FAERS Safety Report 5708566-6 (Version None)
Quarter: 2008Q2

REPORT INFORMATION
  Report Type: 
  Country: None (occurrence: None)
  Receive Date: 20080417
  Receipt Date: 20080411
  Transmission Date: 20081010
  Serious: Yes (Other)
  Sender: FDA-Public Use
  Company Number: JP-PFIZER INC-2008032894

PATIENT
  Age: 59 Year
  Sex: Male

DRUGS (3)
  1. ATARAX [Suspect]
     Indication: URTICARIA
     Dosage: DAILY DOSE:10MG
     Route: 048
     Dates: start: 20080318, end: 20080401
  2. ALLEGRA [Suspect]
     Indication: URTICARIA
     Dosage: TEXT:TWO TABLETS
     Route: 048
     Dates: start: 20080318, end: 20080323
  3. ALLEGRA [Suspect]

REACTIONS (1)
  - LEUKOCYTOCLASTIC VASCULITIS [None]
